FAERS Safety Report 6619144-9 (Version None)
Quarter: 2010Q1

REPORT INFORMATION
  Report Type: 
  Country: None (occurrence: None)
  Receive Date: 20100305
  Receipt Date: 20100305
  Transmission Date: 20100710
  Serious: No
  Sender: FDA-Public Use
  Company Number: None

PATIENT
  Age: 43 Year
  Sex: Male
  Weight: 78.0187 kg

DRUGS (1)
  1. CEFUROXIME AXETIL [Suspect]
     Indication: PNEUMONIA BACTERIAL
     Dosage: 500 MG 2X PO
     Route: 048
     Dates: start: 20100302, end: 20100304

REACTIONS (1)
  - COUGH [None]
